FAERS Safety Report 17197596 (Version 2)
Quarter: 2021Q2

REPORT INFORMATION
  Report Type: Spontaneous
  Country: HR (occurrence: HR)
  Receive Date: 20191224
  Receipt Date: 20210521
  Transmission Date: 20210716
  Serious: Yes (Hospitalization, Other)
  Sender: FDA-Public Use
  Company Number: HR-009507513-1912HRV009720

PATIENT
  Age: 58 Year
  Sex: Female

DRUGS (7)
  1. HELEX [Concomitant]
     Active Substance: ALPRAZOLAM
     Dosage: 0.25 2X1
  2. ANASTROZOLE. [Suspect]
     Active Substance: ANASTROZOLE
     Dosage: UNK
  3. ZALDIAR [Concomitant]
     Active Substance: ACETAMINOPHEN\TRAMADOL HYDROCHLORIDE
     Dosage: WHEN NEEDED
  4. DEXAMETHASONE. [Concomitant]
     Active Substance: DEXAMETHASONE
     Dosage: 2X8 MG I.V.
     Route: 042
  5. ZOLEDRONIC ACID [Suspect]
     Active Substance: ZOLEDRONIC ACID
     Dosage: UNK
  6. CONTROLOC [Concomitant]
     Active Substance: PANTOPRAZOLE SODIUM
     Dosage: 20 MG 1X1
  7. KEYTRUDA [Suspect]
     Active Substance: PEMBROLIZUMAB
     Indication: LUNG ADENOCARCINOMA
     Dosage: 200 MILLIGRAM, Q3W
     Dates: start: 201902, end: 202012

REACTIONS (21)
  - Hyperpyrexia [Unknown]
  - Groin pain [Unknown]
  - Epistaxis [Unknown]
  - Malignant neoplasm progression [Not Recovered/Not Resolved]
  - Nausea [Unknown]
  - Intervertebral disc degeneration [Unknown]
  - Myalgia [Unknown]
  - Glossitis [Unknown]
  - Rash [Recovered/Resolved]
  - Neuropathy peripheral [Unknown]
  - Tachycardia [Not Recovered/Not Resolved]
  - Dyspnoea exertional [Unknown]
  - Bone pain [Unknown]
  - Hyperthyroidism [Not Recovered/Not Resolved]
  - Osteopenia [Unknown]
  - Asthenia [Unknown]
  - Fatigue [Unknown]
  - Squamous cell breast carcinoma [Not Recovered/Not Resolved]
  - Pemphigoid [Not Recovered/Not Resolved]
  - Osteoporosis [Unknown]
  - Lacrimation increased [Unknown]

NARRATIVE: CASE EVENT DATE: 2019
